FAERS Safety Report 6433095-4 (Version None)
Quarter: 2009Q4

REPORT INFORMATION
  Report Type: 
  Country: None (occurrence: None)
  Receive Date: 20091105
  Receipt Date: 20091027
  Transmission Date: 20100525
  Serious: Yes (Death)
  Sender: FDA-Public Use
  Company Number: 2009AL006873

PATIENT
  Age: 25 Year
  Sex: Female

DRUGS (11)
  1. NAPROXEN [Suspect]
  2. TEMAZEPAM [Suspect]
  3. CITALOPRAM HYDROBROMIDE [Suspect]
  4. LITHIUM [Concomitant]
  5. ZYPREXA [Concomitant]
  6. RISPERDAL [Concomitant]
  7. LEXAPRO [Concomitant]
  8. AMBIEN [Concomitant]
  9. METHOCARBAMOL [Concomitant]
  10. ALCOHOL [Concomitant]
  11. DEXTROMETHORPHAN [Concomitant]

REACTIONS (8)
  - ALCOHOL POISONING [None]
  - BRONCHOPNEUMONIA [None]
  - CONTUSION [None]
  - DRUG TOXICITY [None]
  - FALL [None]
  - LOSS OF CONSCIOUSNESS [None]
  - PULMONARY CONGESTION [None]
  - UNRESPONSIVE TO STIMULI [None]
